FAERS Safety Report 5901599-6 (Version None)
Quarter: 2008Q3

REPORT INFORMATION
  Report Type: 
  Country: None (occurrence: None)
  Receive Date: 20080926
  Receipt Date: 20080926
  Transmission Date: 20090109
  Serious: Yes (Other)
  Sender: FDA-Public Use
  Company Number: None

PATIENT
  Age: 52 Year
  Sex: Female
  Weight: 55.3388 kg

DRUGS (2)
  1. BUDEPRION XL 150 MG TEVA USA [Suspect]
     Indication: DEPRESSION
     Dosage: 450 MG - 3 TABS ONCE A DAY PO
     Route: 048
     Dates: start: 20080201, end: 20080315
  2. BUDEPRION XL 150 MG TEVA USA [Suspect]
     Indication: DEPRESSION
     Dosage: 450 MG - 3 TABS ONCE A DAY PO
     Route: 048
     Dates: start: 20080801, end: 20080924

REACTIONS (7)
  - ANXIETY [None]
  - DEPRESSION [None]
  - ECONOMIC PROBLEM [None]
  - FEELING ABNORMAL [None]
  - HEADACHE [None]
  - PHARMACEUTICAL PRODUCT COMPLAINT [None]
  - THERAPEUTIC RESPONSE UNEXPECTED WITH DRUG SUBSTITUTION [None]
